FAERS Safety Report 12541587 (Version 4)
Quarter: 2016Q3

REPORT INFORMATION
  Report Type: Report from Study
  Country: ZA (occurrence: ZA)
  Receive Date: 20160708
  Receipt Date: 20160819
  Transmission Date: 20161109
  Serious: Yes (Hospitalization)
  Sender: FDA-Public Use
  Company Number: ZA-ABBVIE-15P-143-1455281-00

PATIENT
  Age: 14 Year
  Sex: Male
  Weight: 47.8 kg

DRUGS (5)
  1. CALCIFEROL [Concomitant]
     Active Substance: ERGOCALCIFEROL
     Indication: PRODUCT USED FOR UNKNOWN INDICATION
  2. HUMIRA [Suspect]
     Active Substance: ADALIMUMAB
     Route: 058
     Dates: end: 201601
  3. AZASAN [Concomitant]
     Active Substance: AZATHIOPRINE
     Indication: PRODUCT USED FOR UNKNOWN INDICATION
  4. HUMIRA [Suspect]
     Active Substance: ADALIMUMAB
     Indication: CROHN^S DISEASE
     Dosage: WEEK 0
     Route: 058
     Dates: start: 20150824, end: 20150824
  5. HUMIRA [Suspect]
     Active Substance: ADALIMUMAB
     Route: 058
     Dates: start: 20160201

REACTIONS (22)
  - Performance status decreased [Unknown]
  - Fatigue [Unknown]
  - Crohn^s disease [Unknown]
  - Dizziness [Unknown]
  - Disturbance in attention [Unknown]
  - Temporal lobe epilepsy [Unknown]
  - Amnesia [Unknown]
  - Headache [Unknown]
  - Mood swings [Unknown]
  - Depression [Unknown]
  - Hypoaesthesia [Unknown]
  - Suicidal ideation [Unknown]
  - Dizziness [Unknown]
  - Nausea [Unknown]
  - Nausea [Unknown]
  - Pain [Unknown]
  - Back pain [Unknown]
  - Hallucination, visual [Unknown]
  - Headache [Unknown]
  - Diplopia [Unknown]
  - Injection site pruritus [Unknown]
  - Adverse drug reaction [Unknown]

NARRATIVE: CASE EVENT DATE: 201508
